FAERS Safety Report 5269980-9 (Version None)
Quarter: 2007Q1

REPORT INFORMATION
  Report Type: 
  Country: None (occurrence: None)
  Receive Date: 20061212
  Receipt Date: 20060809
  Transmission Date: 20070707
  Serious: No
  Sender: FDA-Public Use
  Company Number: E3810-00128-SPO-US

PATIENT
  Age: 47 Year
  Sex: Male

DRUGS (8)
  1. ACIPHEX [Suspect]
     Indication: GASTROOESOPHAGEAL REFLUX DISEASE
     Dosage: 40 MG, UNK; ORAL, 10 MG, 1 IN 1 D; ORAL
     Route: 048
     Dates: start: 20050701, end: 20050901
  2. ACIPHEX [Suspect]
     Indication: PROPHYLAXIS
     Dosage: 40 MG, UNK; ORAL, 10 MG, 1 IN 1 D; ORAL
     Route: 048
     Dates: start: 20050701, end: 20050901
  3. ACIPHEX [Suspect]
     Indication: GASTROOESOPHAGEAL REFLUX DISEASE
     Dosage: 40 MG, UNK; ORAL, 10 MG, 1 IN 1 D; ORAL
     Route: 048
     Dates: start: 20050901, end: 20051001
  4. ACIPHEX [Suspect]
     Indication: PROPHYLAXIS
     Dosage: 40 MG, UNK; ORAL, 10 MG, 1 IN 1 D; ORAL
     Route: 048
     Dates: start: 20050901, end: 20051001
  5. DIOVAN [Concomitant]
  6. LASIX [Concomitant]
  7. LEXAPRO [Concomitant]
  8. WELLBUTRIN [Concomitant]

REACTIONS (2)
  - BLOOD SODIUM DECREASED [None]
  - DEPRESSION [None]
